FAERS Safety Report 6976697-9 (Version None)
Quarter: 2010Q3

REPORT INFORMATION
  Report Type: 
  Country: None (occurrence: None)
  Receive Date: 20100910
  Receipt Date: 20100902
  Transmission Date: 20110219
  Serious: Yes (Hospitalization, Other)
  Sender: FDA-Public Use
  Company Number: US-SANOFI-AVENTIS-2010SA053624

PATIENT
  Age: 65 Year
  Sex: Female

DRUGS (2)
  1. LANTUS [Suspect]
     Dosage: DOSE:86 UNIT(S)
     Route: 058
  2. OPTICLICK [Suspect]

REACTIONS (3)
  - EATING DISORDER [None]
  - GASTRIC CANCER [None]
  - HAEMATOCHEZIA [None]
